FAERS Safety Report 24679901 (Version 1)
Quarter: 2024Q4

REPORT INFORMATION
  Report Type: Spontaneous
  Country: JP (occurrence: JP)
  Receive Date: 20241129
  Receipt Date: 20241129
  Transmission Date: 20250114
  Serious: Yes (Death)
  Sender: SANDOZ
  Company Number: JP-asahikaseip-2024-AER-06586

PATIENT
  Age: 70 Year
  Sex: Female

DRUGS (1)
  1. RECLAST [Suspect]
     Active Substance: ZOLEDRONIC ACID
     Indication: Product used for unknown indication
     Dosage: 5 MG
     Route: 041
     Dates: start: 20230919, end: 20230919

REACTIONS (1)
  - Death [Fatal]

NARRATIVE: CASE EVENT DATE: 20240812
